FAERS Safety Report 5972727-1 (Version None)
Quarter: 2008Q4

REPORT INFORMATION
  Report Type: 
  Country: None (occurrence: None)
  Receive Date: 20081201
  Receipt Date: 20081029
  Transmission Date: 20090506
  Serious: No
  Sender: FDA-Public Use
  Company Number: US-BAYER-200837103NA

PATIENT
  Sex: Female
  Weight: 117 kg

DRUGS (9)
  1. ULTRAVIST 370 [Suspect]
     Indication: COMPUTERISED TOMOGRAM ABDOMEN
     Dosage: TOTAL DAILY DOSE: 120 ML  UNIT DOSE: 500 ML
     Route: 042
  2. SYNTHROID [Concomitant]
  3. KLOR-CON [Concomitant]
  4. LASIX [Concomitant]
  5. ROLAIDS [Concomitant]
  6. GLUCOSAMIN [Concomitant]
  7. TYLENOL (CAPLET) [Concomitant]
  8. CHONDROITIN [Concomitant]
  9. CONTRAST MEDIA [Concomitant]
     Indication: COMPUTERISED TOMOGRAM ABDOMEN
     Route: 048

REACTIONS (2)
  - PRURITUS [None]
  - URTICARIA [None]
